FAERS Safety Report 19134541 (Version 3)
Quarter: 2021Q2

REPORT INFORMATION
  Report Type: Spontaneous
  Country: IT (occurrence: IT)
  Receive Date: 20210414
  Receipt Date: 20210429
  Transmission Date: 20210717
  Serious: Yes (Other)
  Sender: FDA-Public Use
  Company Number: IT-PFIZER INC-2021355533

PATIENT
  Age: 7 Decade
  Sex: Male

DRUGS (1)
  1. PACLITAXEL. [Suspect]
     Active Substance: PACLITAXEL
     Indication: GLOMUS TUMOUR
     Dosage: UNK
     Dates: start: 2016

REACTIONS (2)
  - Systemic toxicity [Unknown]
  - Off label use [Unknown]

NARRATIVE: CASE EVENT DATE: 2016
